FAERS Safety Report 6207592-0 (Version None)
Quarter: 2009Q2

REPORT INFORMATION
  Report Type: 
  Country: None (occurrence: None)
  Receive Date: 20090526
  Receipt Date: 20090311
  Transmission Date: 20091009
  Serious: No
  Sender: FDA-Public Use
  Company Number: 08P-020-0487444-00

PATIENT
  Age: 15 Month
  Sex: Male
  Weight: 9.8 kg

DRUGS (7)
  1. SYNAGIS [Suspect]
     Dosage: INTRAMUSCULAR
     Route: 030
     Dates: start: 20080728, end: 20080728
  2. SYNAGIS [Suspect]
     Dosage: INTRAMUSCULAR
     Route: 030
     Dates: start: 20080828, end: 20080828
  3. SYNAGIS [Suspect]
     Dosage: INTRAMUSCULAR
     Route: 030
     Dates: start: 20080929
  4. SALBUTAMOL(INHALANT) (SALBUTAMOL) [Concomitant]
  5. BECLOMETASONE DIPROPIONATE(INHALANT) (BECLOMETASONE DIPROPIONATE) [Concomitant]
  6. LOPERAMIDE HYDROCHLORIDE [Concomitant]
  7. RANITIDINE HYDROCHLORIDE [Concomitant]

REACTIONS (12)
  - ADENOIDAL DISORDER [None]
  - ANAEMIA [None]
  - ASTHMA [None]
  - COUGH [None]
  - DYSPNOEA [None]
  - LUNG DISORDER [None]
  - NASOPHARYNGITIS [None]
  - PLATELET COUNT INCREASED [None]
  - PULMONARY OEDEMA [None]
  - PYREXIA [None]
  - WEIGHT DECREASED [None]
  - WHEEZING [None]
